FAERS Safety Report 8808121 (Version 2)
Quarter: 2014Q3

REPORT INFORMATION
  Report Type: Report from Study
  Country: US (occurrence: US)
  Receive Date: 20120925
  Receipt Date: 20140903
  Transmission Date: 20150326
  Serious: Yes (Death, Hospitalization)
  Sender: FDA-Public Use
  Company Number: US-ROCHE-1126570

PATIENT
  Sex: Male

DRUGS (1)
  1. AVASTIN [Suspect]
     Active Substance: BEVACIZUMAB
     Indication: PLASMA CELL MYELOMA
     Route: 042
     Dates: start: 20070226

REACTIONS (4)
  - Off label use [Unknown]
  - Plasma cell myeloma [Fatal]
  - Asthenia [Unknown]
  - Pyrexia [Unknown]
